FAERS Safety Report 10210289 (Version 8)
Quarter: 2015Q2

REPORT INFORMATION
  Report Type: Spontaneous
  Country: US (occurrence: US)
  Receive Date: 20140602
  Receipt Date: 20150518
  Transmission Date: 20150821
  Serious: Yes (Life-Threatening, Hospitalization, Congenital Anomaly, Other)
  Sender: FDA-Public Use
  Company Number: US-ELI_LILLY_AND_COMPANY-US201405008608

PATIENT
  Weight: 3.54 kg

DRUGS (2)
  1. PROZAC [Suspect]
     Active Substance: FLUOXETINE HYDROCHLORIDE
     Indication: PRODUCT USED FOR UNKNOWN INDICATION
     Dosage: UNK, UNKNOWN
     Route: 064
  2. PROZAC [Suspect]
     Active Substance: FLUOXETINE HYDROCHLORIDE
     Indication: PRODUCT USED FOR UNKNOWN INDICATION
     Dosage: UNK, UNKNOWN
     Route: 064

REACTIONS (20)
  - Coxsackie viral infection [Recovered/Resolved]
  - Renal failure [Unknown]
  - Congenital aortic valve incompetence [Unknown]
  - Atrial septal defect [Unknown]
  - Tachycardia foetal [Recovered/Resolved]
  - Respiratory distress [Unknown]
  - Dilatation atrial [Recovered/Resolved]
  - Hepatomegaly [Recovered/Resolved]
  - Ventricular dysfunction [Unknown]
  - Foetal exposure during pregnancy [Recovered/Resolved]
  - Exposure during breast feeding [Unknown]
  - Myocarditis [Recovered/Resolved]
  - Cardiogenic shock [Recovered/Resolved]
  - Pulmonary arterial hypertension [Recovered/Resolved]
  - Cardiac murmur [Recovered/Resolved]
  - Cardiac failure congestive [Recovered/Resolved]
  - Ventricular septal defect [Recovered/Resolved]
  - Mitral valve incompetence [Recovering/Resolving]
  - Tricuspid valve incompetence [Recovering/Resolving]
  - Apgar score low [Recovered/Resolved]
